FAERS Safety Report 20542387 (Version 2)
Quarter: 2022Q1

REPORT INFORMATION
  Report Type: Spontaneous
  Country: DE (occurrence: None)
  Receive Date: 20220302
  Receipt Date: 20220304
  Transmission Date: 20220424
  Serious: Yes (Hospitalization, Other)
  Sender: FDA-Public Use
  Company Number: 2022A093268

PATIENT
  Sex: Female

DRUGS (1)
  1. TAGRISSO [Suspect]
     Active Substance: OSIMERTINIB
     Indication: Lung adenocarcinoma stage 0
     Route: 048
     Dates: start: 2019

REACTIONS (11)
  - COVID-19 [Unknown]
  - Clostridium difficile colitis [Unknown]
  - Metastases to liver [Unknown]
  - Metastases to spine [Unknown]
  - Metastases to lung [Unknown]
  - Pneumothorax [Unknown]
  - Malignant neoplasm progression [Unknown]
  - Lung disorder [Unknown]
  - Sedation complication [Unknown]
  - Post procedural haemorrhage [Unknown]
  - Restlessness [Unknown]
